FAERS Safety Report 5907229-1 (Version None)
Quarter: 2008Q4

REPORT INFORMATION
  Report Type: 
  Country: None (occurrence: None)
  Receive Date: 20081003
  Receipt Date: 20080925
  Transmission Date: 20090506
  Serious: Yes (Hospitalization)
  Sender: FDA-Public Use
  Company Number: JP-ABBOTT-08P-087-0478525-00

PATIENT
  Sex: Male

DRUGS (6)
  1. KALETRA [Suspect]
     Indication: HIV INFECTION
     Dosage: 4 TABLETS, 800/200MG, DAILY
     Route: 048
     Dates: start: 20061025
  2. STAVUDINE [Suspect]
     Indication: HIV INFECTION
     Dosage: 80MG, DAILY
     Route: 048
     Dates: start: 20060906, end: 20070417
  3. METRONIDAZOLE [Suspect]
     Indication: GIARDIASIS
     Route: 048
     Dates: start: 20070523, end: 20070524
  4. LAMIVUDINE [Concomitant]
     Indication: HIV INFECTION
     Route: 048
     Dates: start: 20060906, end: 20070417
  5. ABACAVIR SULFATE/LAMIVUDINE [Concomitant]
     Indication: HIV INFECTION
     Route: 048
     Dates: start: 20070418
  6. PENTAMIDINE ISETIANATE [Concomitant]
     Indication: ANTIFUNGAL PROPHYLAXIS
     Route: 055
     Dates: start: 20060906, end: 20070711

REACTIONS (5)
  - DIARRHOEA [None]
  - GIARDIASIS [None]
  - NAUSEA [None]
  - PYREXIA [None]
  - RASH [None]
